FAERS Safety Report 18330374 (Version 1)
Quarter: 2020Q3

REPORT INFORMATION
  Report Type: Spontaneous
  Country: FR (occurrence: FR)
  Receive Date: 20200930
  Receipt Date: 20200930
  Transmission Date: 20201103
  Serious: Yes (Hospitalization)
  Sender: FDA-Public Use
  Company Number: FR-MYLANLABS-2020M1081892

PATIENT
  Age: 84 Year
  Sex: Female
  Weight: 47 kg

DRUGS (8)
  1. CLONIDINE. [Suspect]
     Active Substance: CLONIDINE
     Indication: ANAESTHESIA
     Dosage: UNK
     Dates: start: 20200622, end: 20200622
  2. SUFENTANIL [Suspect]
     Active Substance: SUFENTANIL
     Indication: SPINAL ANAESTHESIA
     Dosage: UNK
     Route: 037
     Dates: start: 20200622, end: 20200622
  3. EUPANTOL [Suspect]
     Active Substance: PANTOPRAZOLE SODIUM
     Indication: GASTROINTESTINAL PROCEDURAL COMPLICATION
     Dosage: UNK
     Dates: start: 20200622, end: 20200629
  4. HYPNOVEL                           /00634101/ [Suspect]
     Active Substance: MIDAZOLAM HYDROCHLORIDE
     Indication: SPINAL ANAESTHESIA
     Dosage: UNK
     Route: 037
     Dates: start: 20200622, end: 20200622
  5. LOVENOX [Suspect]
     Active Substance: ENOXAPARIN SODIUM
     Indication: PRODUCT USED FOR UNKNOWN INDICATION
     Dosage: UNK
     Route: 058
     Dates: start: 20200622, end: 20200622
  6. APRANAX                            /00256201/ [Suspect]
     Active Substance: NAPROXEN
     Indication: POSTOPERATIVE ANALGESIA
     Dosage: UNK
     Dates: start: 20200622, end: 20200624
  7. BUPIVACAINE. [Suspect]
     Active Substance: BUPIVACAINE
     Indication: SPINAL ANAESTHESIA
     Dosage: UNK
     Route: 037
     Dates: start: 20200622, end: 20200622
  8. ZOPHREN                            /00955302/ [Suspect]
     Active Substance: ONDANSETRON
     Indication: GASTROINTESTINAL PROCEDURAL COMPLICATION
     Dosage: UNK
     Dates: start: 20200622, end: 20200625

REACTIONS (2)
  - Neutropenia [Recovered/Resolved]
  - Anaemia [Recovered/Resolved]

NARRATIVE: CASE EVENT DATE: 20200623
